FAERS Safety Report 13901528 (Version 1)
Quarter: 2017Q3

REPORT INFORMATION
  Report Type: Spontaneous
  Country: US (occurrence: US)
  Receive Date: 20170824
  Receipt Date: 20170824
  Transmission Date: 20171127
  Serious: No
  Sender: FDA-Public Use
  Company Number: US-ASTRAZENECA-2017SE86099

PATIENT
  Sex: Female
  Weight: 62.6 kg

DRUGS (5)
  1. SYMBICORT [Suspect]
     Active Substance: BUDESONIDE\FORMOTEROL FUMARATE DIHYDRATE
     Indication: DYSPNOEA
     Dosage: 160/4.5 MCG, 2 PUFFS TWICE A DAY
     Route: 055
  2. ROSUVASTATIN. [Suspect]
     Active Substance: ROSUVASTATIN
     Indication: BLOOD CHOLESTEROL ABNORMAL
     Route: 048
  3. OLMESARTAN [Concomitant]
     Active Substance: OLMESARTAN
     Indication: PALPITATIONS
     Route: 048
  4. TUDORZA PRESSAIR [Suspect]
     Active Substance: ACLIDINIUM BROMIDE
     Indication: DYSPNOEA
     Dosage: 400 UG, ONE PUFF, TWO TIMES A DAY
     Route: 055
  5. DILTIAZEM. [Concomitant]
     Active Substance: DILTIAZEM
     Indication: BLOOD PRESSURE ABNORMAL
     Route: 048

REACTIONS (7)
  - Asthenia [Unknown]
  - Intentional product misuse [Unknown]
  - Drug dose omission [Unknown]
  - Wrong technique in device usage process [Unknown]
  - Off label use [Unknown]
  - Product quality issue [Unknown]
  - Product use in unapproved indication [Unknown]
